FAERS Safety Report 25214015 (Version 1)
Quarter: 2025Q2

REPORT INFORMATION
  Report Type: Spontaneous
  Country: US (occurrence: US)
  Receive Date: 20250418
  Receipt Date: 20250418
  Transmission Date: 20250717
  Serious: No
  Sender: PFIZER
  Company Number: US-PFIZER INC-PV202400001760

PATIENT
  Age: 32 Year
  Sex: Male

DRUGS (16)
  1. XELJANZ [Suspect]
     Active Substance: TOFACITINIB CITRATE
     Dosage: 5 MG, 2X/DAY
     Route: 048
     Dates: start: 2015, end: 2025
  2. AZELASTINE HYDROCHLORIDE [Concomitant]
     Active Substance: AZELASTINE HYDROCHLORIDE
  3. BACLOFEN [Concomitant]
     Active Substance: BACLOFEN
  4. FLUDROCORTISONE ACETATE [Concomitant]
     Active Substance: FLUDROCORTISONE ACETATE
  5. FUROSEMIDE [Concomitant]
     Active Substance: FUROSEMIDE
  6. GABAPENTIN [Concomitant]
     Active Substance: GABAPENTIN
  7. IPRATROPIUM BROMIDE [Concomitant]
     Active Substance: IPRATROPIUM BROMIDE
  8. LORZONE [Concomitant]
     Active Substance: CHLORZOXAZONE
  9. LOSARTAN POTASSIUM [Concomitant]
     Active Substance: LOSARTAN POTASSIUM
  10. PLAQUENIL [Concomitant]
     Active Substance: HYDROXYCHLOROQUINE SULFATE
  11. PREDNISONE [Concomitant]
     Active Substance: PREDNISONE
  12. PRIVIGEN [Concomitant]
     Active Substance: HUMAN IMMUNOGLOBULIN G
  13. SYNTHROID [Concomitant]
     Active Substance: LEVOTHYROXINE SODIUM
  14. COBAMAMIDE [Concomitant]
     Active Substance: COBAMAMIDE
  15. VITAMIN E [Concomitant]
     Active Substance: .ALPHA.-TOCOPHEROL
  16. XOPENEX HFA [Concomitant]
     Active Substance: LEVALBUTEROL TARTRATE

REACTIONS (1)
  - Herpes zoster [Recovered/Resolved]

NARRATIVE: CASE EVENT DATE: 20250201
